FAERS Safety Report 19647008 (Version 2)
Quarter: 2021Q3

REPORT INFORMATION
  Report Type: Spontaneous
  Country: HR (occurrence: HR)
  Receive Date: 20210802
  Receipt Date: 20210903
  Transmission Date: 20211014
  Serious: Yes (Hospitalization, Other)
  Sender: FDA-Public Use
  Company Number: HR-LUPIN PHARMACEUTICALS INC.-2021-13265

PATIENT
  Age: 46 Year
  Sex: Female
  Weight: 84 kg

DRUGS (19)
  1. SULFAMETHOXAZOLE AND TRIMETHOPRIM [Suspect]
     Active Substance: SULFAMETHOXAZOLE\TRIMETHOPRIM
     Indication: URINARY TRACT INFECTION
     Dosage: 1 DOSAGE FORM, BID TWO 14?DAY COURSES (400MG/80MG)
     Route: 048
     Dates: start: 201801, end: 20180325
  2. DICLOFENAC [Interacting]
     Active Substance: DICLOFENAC
     Dosage: 200 MILLIGRAM, QD
     Route: 048
  3. CEFTRIAXONE. [Interacting]
     Active Substance: CEFTRIAXONE
     Indication: PNEUMONIA
     Dosage: 1 GRAM, QD
     Route: 042
     Dates: start: 20180429, end: 20180505
  4. FURSEMID [Interacting]
     Active Substance: FUROSEMIDE
     Indication: ACUTE KIDNEY INJURY
     Dosage: 40 MILLIGRAM, QD
     Route: 048
     Dates: start: 20180325
  5. CHOLIB [Suspect]
     Active Substance: FENOFIBRATE\SIMVASTATIN
     Dosage: 145/40 MILLIGRAM
     Route: 048
     Dates: start: 20200520
  6. CALCIUM CARBONATE. [Concomitant]
     Active Substance: CALCIUM CARBONATE
     Indication: HYPOCALCAEMIA
     Dosage: 3 GRAM, QD, 3X1G/DAY
     Route: 048
  7. DICLOFENAC [Interacting]
     Active Substance: DICLOFENAC
     Dosage: 150 MILLIGRAM, QD
     Route: 048
     Dates: end: 20180325
  8. CEFTRIAXONE. [Interacting]
     Active Substance: CEFTRIAXONE
     Indication: URINARY TRACT INFECTION
  9. CHOLIB [Suspect]
     Active Substance: FENOFIBRATE\SIMVASTATIN
     Indication: DYSLIPIDAEMIA
     Dosage: 145/20 MILLIGRAM
     Route: 048
     Dates: start: 20200317
  10. METHYLPREDNISOLONE. [Concomitant]
     Active Substance: METHYLPREDNISOLONE
     Dosage: 250 MILLIGRAM, QD
     Route: 042
     Dates: start: 2018
  11. ATORVASTATIN CALCIUM. [Interacting]
     Active Substance: ATORVASTATIN CALCIUM
     Indication: DYSLIPIDAEMIA
     Dosage: 20 MILLIGRAM, QD
     Route: 048
     Dates: start: 20180412, end: 20180510
  12. PREDNISONE. [Concomitant]
     Active Substance: PREDNISONE
     Indication: PRODUCT USED FOR UNKNOWN INDICATION
     Dosage: 60 MILLIGRAM, QD
     Route: 048
  13. DICLOFENAC [Interacting]
     Active Substance: DICLOFENAC
     Indication: MIGRAINE
     Dosage: UNK
     Route: 048
     Dates: start: 201801
  14. CONTROLOC [Interacting]
     Active Substance: PANTOPRAZOLE SODIUM
     Indication: PRODUCT USED FOR UNKNOWN INDICATION
     Dosage: 40 MILLIGRAM, QD
     Route: 048
     Dates: start: 20180405
  15. CALCITRIOL. [Concomitant]
     Active Substance: CALCITRIOL
     Indication: HYPOCALCAEMIA
     Dosage: 0.25 MICROGRAM, BID
     Route: 048
     Dates: start: 2018
  16. CEFUROXIME. [Concomitant]
     Active Substance: CEFUROXIME
     Indication: URINARY TRACT INFECTION
     Dosage: 500 MILLIGRAM, QD
     Route: 048
  17. METHYLPREDNISOLONE. [Concomitant]
     Active Substance: METHYLPREDNISOLONE
     Indication: ACUTE KIDNEY INJURY
     Dosage: UNK
     Route: 048
     Dates: start: 2018
  18. PROPRANOLOL HYDROCHLORIDE. [Concomitant]
     Active Substance: PROPRANOLOL HYDROCHLORIDE
     Indication: MIGRAINE
     Dosage: 60 MILLIGRAM, QD, 3X20 MG/DAY
     Route: 048
  19. METHYLPREDNISOLONE. [Concomitant]
     Active Substance: METHYLPREDNISOLONE
     Dosage: 40 MILLIGRAM, QD
     Route: 048
     Dates: start: 2018

REACTIONS (19)
  - Nephrotic syndrome [Unknown]
  - Acute kidney injury [Recovered/Resolved]
  - Systemic toxicity [Unknown]
  - Nephropathy toxic [Recovered/Resolved]
  - Hypokalaemia [Unknown]
  - Anaemia [Unknown]
  - Myopathy [Recovered/Resolved]
  - Renal impairment [Unknown]
  - Dyslipidaemia [Unknown]
  - Glomerulonephritis minimal lesion [Unknown]
  - Myalgia [Recovered/Resolved]
  - Hepatic function abnormal [Unknown]
  - Myopathy toxic [Unknown]
  - Renal tubular injury [Unknown]
  - Drug-induced liver injury [Recovered/Resolved]
  - Drug interaction [Unknown]
  - Multiple sclerosis [Unknown]
  - Hypocalcaemia [Unknown]
  - Tubulointerstitial nephritis [Unknown]
